FAERS Safety Report 10524976 (Version 1)
Quarter: 2014Q4

REPORT INFORMATION
  Report Type: Spontaneous
  Country: US (occurrence: US)
  Receive Date: 20141017
  Receipt Date: 20141017
  Transmission Date: 20150528
  Serious: Yes (Hospitalization, Other)
  Sender: FDA-Public Use
  Company Number: US-ELI_LILLY_AND_COMPANY-US201410003153

PATIENT
  Sex: Female

DRUGS (16)
  1. HUMALOG [Suspect]
     Active Substance: INSULIN LISPRO
     Dosage: 6 U, QD
     Route: 065
     Dates: start: 20140903
  2. NEURONTIN [Concomitant]
     Active Substance: GABAPENTIN
  3. PREDNISONE. [Concomitant]
     Active Substance: PREDNISONE
  4. VITAMIN C [Concomitant]
     Active Substance: ASCORBIC ACID
  5. HYDROCHLOROTHIAZIDE. [Concomitant]
     Active Substance: HYDROCHLOROTHIAZIDE
  6. METFORMIN [Concomitant]
     Active Substance: METFORMIN HYDROCHLORIDE
  7. ASPIRIN. [Concomitant]
     Active Substance: ASPIRIN
  8. VITAMIN D                          /00107901/ [Concomitant]
     Active Substance: ERGOCALCIFEROL
  9. TENORMIN [Concomitant]
     Active Substance: ATENOLOL
  10. AMARYL [Concomitant]
     Active Substance: GLIMEPIRIDE
  11. LISINOPRIL. [Concomitant]
     Active Substance: LISINOPRIL
  12. TYLENOL [Concomitant]
     Active Substance: ACETAMINOPHEN
     Indication: PAIN
  13. NORVASC [Concomitant]
     Active Substance: AMLODIPINE BESYLATE
  14. SYNTHROID [Concomitant]
     Active Substance: LEVOTHYROXINE SODIUM
  15. HUMALOG [Suspect]
     Active Substance: INSULIN LISPRO
     Indication: TYPE 2 DIABETES MELLITUS
     Dosage: 8 U, BID
     Route: 065
     Dates: start: 20140903
  16. PRILOSEC [Concomitant]
     Active Substance: OMEPRAZOLE MAGNESIUM
     Dosage: UNK, PRN

REACTIONS (3)
  - Blood sodium decreased [Unknown]
  - Electrocardiogram abnormal [Recovered/Resolved]
  - Dehydration [Unknown]
